FAERS Safety Report 8575385 (Version 3)
Quarter: 2013Q4

REPORT INFORMATION
  Report Type: Spontaneous
  Country: US (occurrence: US)
  Receive Date: 20120523
  Receipt Date: 20131111
  Transmission Date: 20140711
  Serious: Yes (Other)
  Sender: FDA-Public Use
  Company Number: US-ASTELLAS-2012US004762

PATIENT
  Sex: Female

DRUGS (4)
  1. PROGRAF [Suspect]
     Indication: PROPHYLAXIS AGAINST GRAFT VERSUS HOST DISEASE
     Dosage: UNK MG, BID
     Route: 065
     Dates: start: 2001
  2. PROGRAF [Suspect]
     Indication: BONE MARROW TRANSPLANT
     Dosage: 5 MG, UID/QD
     Route: 065
  3. PROGRAF [Suspect]
     Dosage: 3 MG, BID
     Route: 048
  4. CORTICOSTEROIDS [Suspect]
     Indication: GRAFT VERSUS HOST DISEASE
     Dosage: UNK
     Route: 065

REACTIONS (8)
  - Off label use [Unknown]
  - Thyroid disorder [Unknown]
  - Osteonecrosis [Unknown]
  - Splenomegaly [Unknown]
  - Hepatic steatosis [Unknown]
  - Diabetes mellitus [Not Recovered/Not Resolved]
  - Dry eye [Unknown]
  - Blood glucose increased [Unknown]
